FAERS Safety Report 4990386-1 (Version None)
Quarter: 2006Q2

REPORT INFORMATION
  Report Type: 
  Country: None (occurrence: None)
  Receive Date: 20060427
  Receipt Date: 20060417
  Transmission Date: 20061013
  Serious: Yes (Life-Threatening, Hospitalization)
  Sender: FDA-Public Use
  Company Number: 06H-163-0307537-00

PATIENT
  Age: 61 Year
  Sex: Male

DRUGS (3)
  1. MORPHINE SULFATE INJ [Suspect]
     Dosage: SEE IMAGE
     Route: 042
     Dates: start: 20060403, end: 20060403
  2. MORPHINE SULFATE INJ [Suspect]
     Dosage: SEE IMAGE
     Route: 042
     Dates: start: 20060403
  3. OXYCODONE IR (OXYCODONE) [Concomitant]
     Indication: ANALGESIC EFFECT

REACTIONS (3)
  - CARDIO-RESPIRATORY ARREST [None]
  - DEPRESSED LEVEL OF CONSCIOUSNESS [None]
  - VOMITING [None]
